FAERS Safety Report 16692647 (Version 1)
Quarter: 2019Q3

REPORT INFORMATION
  Report Type: Spontaneous
  Country: DK (occurrence: DK)
  Receive Date: 20190812
  Receipt Date: 20190812
  Transmission Date: 20191004
  Serious: Yes (Other)
  Sender: FDA-Public Use
  Company Number: DK-JNJFOC-20190801869

PATIENT
  Age: 19 Year
  Sex: Male

DRUGS (2)
  1. RISPERIDONE. [Suspect]
     Active Substance: RISPERIDONE
     Indication: ATTENTION DEFICIT/HYPERACTIVITY DISORDER
     Route: 048
     Dates: end: 20110524
  2. CONCERTA [Suspect]
     Active Substance: METHYLPHENIDATE HYDROCHLORIDE
     Indication: ATTENTION DEFICIT/HYPERACTIVITY DISORDER
     Route: 048
     Dates: end: 201711

REACTIONS (11)
  - Musculoskeletal stiffness [Unknown]
  - Drooling [Unknown]
  - Tendon disorder [Unknown]
  - Feeling abnormal [Unknown]
  - Cardiac disorder [Unknown]
  - Paraesthesia oral [Unknown]
  - Cardiac pacemaker insertion [Unknown]
  - Product use in unapproved indication [Unknown]
  - Swollen tongue [Unknown]
  - Condition aggravated [Unknown]
  - Off label use [Unknown]
